FAERS Safety Report 4835425-3 (Version None)
Quarter: 2005Q4

REPORT INFORMATION
  Report Type: 
  Country: None (occurrence: None)
  Receive Date: 20051118
  Receipt Date: 20051108
  Transmission Date: 20060501
  Serious: Yes (Hospitalization, Other)
  Sender: FDA-Public Use
  Company Number: 2005BI019024

PATIENT
  Age: 8 Month
  Sex: Male
  Weight: 11.8 kg

DRUGS (2)
  1. AVONEX [Suspect]
     Indication: MULTIPLE SCLEROSIS
     Dosage: 30 MG;QW; TRLP
     Dates: start: 20010130, end: 20030801
  2. AVONEX [Suspect]
     Indication: MULTIPLE SCLEROSIS
     Dosage: 30 UG; QW; IM
     Route: 030
     Dates: start: 20040513

REACTIONS (7)
  - CARDIAC ARREST [None]
  - CARDIAC DISORDER [None]
  - CONGENITAL ANOMALY [None]
  - CONGESTIVE CARDIOMYOPATHY [None]
  - CORONARY ARTERY OCCLUSION [None]
  - DRUG EXPOSURE DURING PREGNANCY [None]
  - UNEVALUABLE EVENT [None]
